FAERS Safety Report 10074639 (Version 2)
Quarter: 2014Q2

REPORT INFORMATION
  Report Type: Spontaneous
  Country: GB (occurrence: GB)
  Receive Date: 20140414
  Receipt Date: 20140523
  Transmission Date: 20141212
  Serious: Yes (Hospitalization, Other)
  Sender: FDA-Public Use
  Company Number: GB-ROCHE-1377610

PATIENT
  Age: 67 Year
  Sex: Female
  Weight: 59.4 kg

DRUGS (1)
  1. VEMURAFENIB [Suspect]
     Indication: MALIGNANT MELANOMA
     Route: 048
     Dates: start: 20140227, end: 20140313

REACTIONS (5)
  - Body temperature decreased [Recovered/Resolved]
  - Neutrophil count decreased [Recovered/Resolved]
  - Skin toxicity [Recovered/Resolved]
  - Renal impairment [Not Recovered/Not Resolved]
  - Hepatic function abnormal [Recovering/Resolving]
